FAERS Safety Report 16827505 (Version 1)
Quarter: 2019Q3

REPORT INFORMATION
  Report Type: Report from Study
  Country: None (occurrence: US)
  Receive Date: 20190919
  Receipt Date: 20190919
  Transmission Date: 20191005
  Serious: Yes (Other)
  Sender: FDA-Public Use
  Company Number: US-ABBVIE-19K-163-2927582-00

PATIENT
  Sex: Female

DRUGS (1)
  1. HUMIRA [Suspect]
     Active Substance: ADALIMUMAB
     Indication: RHEUMATOID ARTHRITIS
     Route: 058
     Dates: start: 20190814

REACTIONS (5)
  - Malaise [Unknown]
  - Rheumatoid arthritis [Unknown]
  - Exposure to communicable disease [Recovered/Resolved]
  - Injection site discomfort [Unknown]
  - Headache [Unknown]

NARRATIVE: CASE EVENT DATE: 2019
